FAERS Safety Report 23132237 (Version 1)
Quarter: 2023Q4

REPORT INFORMATION
  Report Type: Spontaneous
  Country: JP (occurrence: JP)
  Receive Date: 20231101
  Receipt Date: 20231101
  Transmission Date: 20240110
  Serious: Yes (Hospitalization, Other)
  Sender: FDA-Public Use
  Company Number: JP-NOVITIUMPHARMA-2023JPNVP01872

PATIENT
  Age: 69 Year
  Sex: Male

DRUGS (8)
  1. PREDNISONE [Suspect]
     Active Substance: PREDNISONE
     Indication: Autoimmune haemolytic anaemia
  2. PREDNISONE [Suspect]
     Active Substance: PREDNISONE
     Indication: Eosinophilic granulomatosis with polyangiitis
  3. TACROLIMUS [Concomitant]
     Active Substance: TACROLIMUS
     Indication: Autoimmune haemolytic anaemia
  4. TACROLIMUS [Concomitant]
     Active Substance: TACROLIMUS
     Indication: Eosinophilic granulomatosis with polyangiitis
  5. COTRIMOXAZOLE [Concomitant]
     Active Substance: SULFAMETHOXAZOLE\TRIMETHOPRIM
     Indication: Eosinophilic granulomatosis with polyangiitis
  6. COTRIMOXAZOLE [Concomitant]
     Active Substance: SULFAMETHOXAZOLE\TRIMETHOPRIM
     Indication: Autoimmune haemolytic anaemia
  7. VONOPRAZAN [Concomitant]
     Active Substance: VONOPRAZAN
     Indication: Autoimmune haemolytic anaemia
  8. VONOPRAZAN [Concomitant]
     Active Substance: VONOPRAZAN
     Indication: Eosinophilic granulomatosis with polyangiitis

REACTIONS (2)
  - Pulmonary embolism [Recovering/Resolving]
  - Renal vein thrombosis [Unknown]
